FAERS Safety Report 15684933 (Version 1)
Quarter: 2018Q4

REPORT INFORMATION
  Report Type: Spontaneous
  Country: US (occurrence: US)
  Receive Date: 20181204
  Receipt Date: 20181204
  Transmission Date: 20190205
  Serious: Yes (Hospitalization)
  Sender: FDA-Public Use
  Company Number: US-ANTARES PHARMA, INC.-2018-LIT-ME-0533

PATIENT
  Age: 76 Year
  Sex: Male

DRUGS (1)
  1. METHOTREXATE. [Suspect]
     Active Substance: METHOTREXATE
     Indication: RHEUMATOID ARTHRITIS

REACTIONS (10)
  - Clumsiness [Recovered/Resolved]
  - Pachymeningitis [Unknown]
  - Ataxia [Recovered/Resolved]
  - C-reactive protein increased [Recovered/Resolved]
  - Rheumatoid nodule [Recovered/Resolved]
  - Upper motor neurone lesion [Recovered/Resolved]
  - Generalised tonic-clonic seizure [Recovered/Resolved]
  - Hyporeflexia [Recovered/Resolved]
  - Meningitis [Recovered/Resolved]
  - Metastases to meninges [Unknown]
